FAERS Safety Report 22063502 (Version 2)
Quarter: 2023Q2

REPORT INFORMATION
  Report Type: Spontaneous
  Country: CA (occurrence: CA)
  Receive Date: 20230306
  Receipt Date: 20230627
  Transmission Date: 20230722
  Serious: Yes (Other)
  Sender: FDA-Public Use
  Company Number: CA-TAKEDA-2023TUS021308

PATIENT
  Age: 37 Year
  Sex: Female

DRUGS (13)
  1. HUMAN IMMUNOGLOBULIN G [Suspect]
     Active Substance: HUMAN IMMUNOGLOBULIN G
     Indication: Myasthenia gravis
     Dosage: UNK
     Route: 042
  2. HUMAN IMMUNOGLOBULIN G [Suspect]
     Active Substance: HUMAN IMMUNOGLOBULIN G
     Dosage: UNK UNK, 1/WEEK
     Route: 042
  3. HUMAN IMMUNOGLOBULIN G [Suspect]
     Active Substance: HUMAN IMMUNOGLOBULIN G
     Dosage: UNK UNK, 3/WEEK
     Route: 042
     Dates: start: 2019
  4. DAPSONE [Suspect]
     Active Substance: DAPSONE
     Indication: Myasthenia gravis
     Dosage: UNK
     Route: 065
     Dates: start: 2019
  5. DAPSONE [Suspect]
     Active Substance: DAPSONE
     Indication: Myasthenia gravis
     Dosage: UNK
     Route: 065
     Dates: start: 2019
  6. HYDROXYCHLOROQUINE [Suspect]
     Active Substance: HYDROXYCHLOROQUINE
     Indication: Myasthenia gravis
     Dosage: UNK
     Route: 065
     Dates: start: 2021
  7. HYDROXYCHLOROQUINE [Suspect]
     Active Substance: HYDROXYCHLOROQUINE
     Indication: Chronic cutaneous lupus erythematosus
  8. MYCOPHENOLATE MOFETIL [Suspect]
     Active Substance: MYCOPHENOLATE MOFETIL
     Indication: Myasthenia gravis
     Dosage: UNK
     Route: 065
     Dates: start: 2021
  9. NIFEDIPINE [Suspect]
     Active Substance: NIFEDIPINE
     Indication: Myasthenia gravis
     Dosage: UNK
     Route: 065
     Dates: start: 2019
  10. NIFEDIPINE [Suspect]
     Active Substance: NIFEDIPINE
     Dosage: UNK
     Route: 065
     Dates: start: 2021
  11. PREDNISONE [Suspect]
     Active Substance: PREDNISONE
     Indication: Myasthenia gravis
     Dosage: UNK
     Route: 065
     Dates: start: 2021
  12. PREDNISONE [Suspect]
     Active Substance: PREDNISONE
     Dosage: UNK UNK, QD
     Route: 065
     Dates: start: 2021
  13. PYRIDOSTIGMINE BROMIDE [Suspect]
     Active Substance: PYRIDOSTIGMINE BROMIDE
     Indication: Myasthenia gravis
     Dosage: UNK
     Route: 065
     Dates: start: 2021

REACTIONS (1)
  - Therapy non-responder [Unknown]
